FAERS Safety Report 21822701 (Version 5)
Quarter: 2023Q1

REPORT INFORMATION
  Report Type: Spontaneous
  Country: US (occurrence: US)
  Receive Date: 20230105
  Receipt Date: 20230324
  Transmission Date: 20230418
  Serious: No
  Sender: FDA-Public Use
  Company Number: US-Blueprint Medicines Corporation-SP-US-2022-003486

PATIENT
  Age: 76 Year
  Sex: Female

DRUGS (3)
  1. AYVAKIT [Suspect]
     Active Substance: AVAPRITINIB
     Indication: Systemic mastocytosis
     Route: 048
     Dates: start: 20221005
  2. AYVAKIT [Suspect]
     Active Substance: AVAPRITINIB
     Route: 048
     Dates: start: 20221005
  3. AYVAKIT [Suspect]
     Active Substance: AVAPRITINIB
     Route: 048
     Dates: start: 20221005

REACTIONS (4)
  - Urine odour abnormal [Not Recovered/Not Resolved]
  - Alopecia [Recovering/Resolving]
  - Product dose omission issue [Unknown]
  - Abnormal faeces [Not Recovered/Not Resolved]

NARRATIVE: CASE EVENT DATE: 20221012
